FAERS Safety Report 21159096 (Version 3)
Quarter: 2022Q3

REPORT INFORMATION
  Report Type: Spontaneous
  Country: US (occurrence: US)
  Receive Date: 20220802
  Receipt Date: 20220811
  Transmission Date: 20221027
  Serious: Yes (Hospitalization, Other)
  Sender: FDA-Public Use
  Company Number: US-009507513-2207USA008514

PATIENT
  Sex: Female

DRUGS (10)
  1. KEYTRUDA [Suspect]
     Active Substance: PEMBROLIZUMAB
     Indication: Endometrial adenocarcinoma
     Dosage: UNK
     Dates: end: 20220617
  2. CARBOPLATIN [Suspect]
     Active Substance: CARBOPLATIN
     Indication: Endometrial adenocarcinoma
     Dosage: 6 CYCLES
     Dates: end: 20220617
  3. TAXOL [Suspect]
     Active Substance: PACLITAXEL
     Indication: Endometrial adenocarcinoma
     Dosage: 6 CYCLES
     Dates: end: 20220617
  4. LORATADINE [Concomitant]
     Active Substance: LORATADINE
     Dosage: UNK
  5. REMERON [Concomitant]
     Active Substance: MIRTAZAPINE
     Dosage: 1 TABLET (15 MG TOTAL) BY MOUTH NIGHTLY
     Route: 048
     Dates: start: 20220519
  6. PRILOSEC [Concomitant]
     Active Substance: OMEPRAZOLE MAGNESIUM
     Dosage: 1 CAPSULE (40 MG TOTAL) BY MOUTH DAILY
     Route: 048
     Dates: start: 20220420
  7. ZOFRAN [Concomitant]
     Active Substance: ONDANSETRON HYDROCHLORIDE
     Dosage: 1 TABLET (4 MG TOTAL) BY MOUTH EVERY 8 (EIGHT) HOURS AS NEEDED FOR NAUSEA
     Route: 048
     Dates: start: 20220519
  8. MIRALAX [Concomitant]
     Active Substance: POLYETHYLENE GLYCOL 3350
     Dosage: 17 G BY MOUTH DAILY
     Route: 048
     Dates: start: 20220323
  9. LYRICA [Concomitant]
     Active Substance: PREGABALIN
     Dosage: 1 CAPSULE (150 MG TOTAL) BY MOUTH 2 (TWO) TIMES A DAY
     Route: 048
     Dates: start: 20220519
  10. SENNOSIDES A AND B [Concomitant]
     Active Substance: SENNOSIDES A AND B
     Dosage: 2 TABLETS (17.2 MG TOTAL) BY MOUTH DAILY
     Route: 048
     Dates: start: 20220323

REACTIONS (32)
  - Urinary tract infection [Unknown]
  - Mental status changes [Unknown]
  - Meningioma [Unknown]
  - Chronic kidney disease-mineral and bone disorder [Unknown]
  - Pulmonary congestion [Unknown]
  - Neutropenia [Unknown]
  - Pericardial effusion [Unknown]
  - Acute kidney injury [Recovered/Resolved]
  - Hypokalaemia [Unknown]
  - Viral infection [Recovered/Resolved]
  - Hypophagia [Unknown]
  - Illness [Unknown]
  - Blood urea increased [Unknown]
  - Hypotension [Recovered/Resolved]
  - Metabolic acidosis [Unknown]
  - Pleural effusion [Unknown]
  - Atelectasis [Unknown]
  - Effusion [Unknown]
  - Abdominal injury [Unknown]
  - Intra-abdominal fluid collection [Unknown]
  - Pelvic fluid collection [Unknown]
  - Spinal osteoarthritis [Unknown]
  - Superficial vein thrombosis [Unknown]
  - Carbon dioxide decreased [Unknown]
  - Haemoglobin decreased [Unknown]
  - Haematocrit decreased [Unknown]
  - Blood glucose increased [Unknown]
  - Generalised oedema [Unknown]
  - Erythema [Recovered/Resolved]
  - Dizziness [Unknown]
  - Hyponatraemia [Unknown]
  - Nausea [Unknown]

NARRATIVE: CASE EVENT DATE: 20220101
